FAERS Safety Report 6297641-6 (Version None)
Quarter: 2009Q3

REPORT INFORMATION
  Report Type: 
  Country: None (occurrence: None)
  Receive Date: 20090805
  Receipt Date: 20090724
  Transmission Date: 20100115
  Serious: Yes (Death)
  Sender: FDA-Public Use
  Company Number: JP-PFIZER INC-2009203485

PATIENT
  Age: 69 Year

DRUGS (5)
  1. LINEZOLID [Suspect]
     Indication: STAPHYLOCOCCAL SEPSIS
     Dosage: 600 MG, 2X/DAY
     Route: 042
     Dates: start: 20081213, end: 20081226
  2. CRAVIT [Concomitant]
     Route: 048
  3. MEROPEN [Concomitant]
     Dosage: UNK
     Route: 042
     Dates: start: 20081214, end: 20081218
  4. REMINARON [Concomitant]
     Dosage: UNK
     Route: 042
     Dates: start: 20081214, end: 20081221
  5. CEFTRIAXONE SODIUM [Concomitant]
     Dosage: UNK
     Route: 042
     Dates: start: 20081219, end: 20081226

REACTIONS (1)
  - PNEUMONIA ASPIRATION [None]
